FAERS Safety Report 17778710 (Version 3)
Quarter: 2020Q4

REPORT INFORMATION
  Report Type: Spontaneous
  Country: US (occurrence: US)
  Receive Date: 20200513
  Receipt Date: 20201023
  Transmission Date: 20210113
  Serious: No
  Sender: FDA-Public Use
  Company Number: US-VERTEX PHARMACEUTICALS-2020-010463

PATIENT
  Age: 66 Year
  Sex: Female
  Weight: 56 kg

DRUGS (1)
  1. TRIKAFTA [Suspect]
     Active Substance: ELEXACAFTOR\IVACAFTOR\TEZACAFTOR
     Indication: CYSTIC FIBROSIS
     Dosage: 100 MG ELEXACAFTOR/ 50 MG TEZACAFTOR/ 75 MG IVACAFTOR AND 150MG IVACAFTOR, TRADITIONAL DOSING
     Route: 048
     Dates: start: 20200128

REACTIONS (7)
  - Lower respiratory tract infection bacterial [Unknown]
  - Oropharyngeal pain [Not Recovered/Not Resolved]
  - Infective pulmonary exacerbation of cystic fibrosis [Unknown]
  - Pneumonia pseudomonal [Unknown]
  - Productive cough [Unknown]
  - Dyspnoea [Not Recovered/Not Resolved]
  - Urinary tract infection [Unknown]

NARRATIVE: CASE EVENT DATE: 2020
